FAERS Safety Report 6171554-2 (Version None)
Quarter: 2009Q2

REPORT INFORMATION
  Report Type: 
  Country: None (occurrence: None)
  Receive Date: 20090429
  Receipt Date: 20090425
  Transmission Date: 20091009
  Serious: Yes (Other)
  Sender: FDA-Public Use
  Company Number: AU-PFIZER INC-2009182911

PATIENT

DRUGS (1)
  1. LYRICA [Suspect]
     Dosage: 300 MG

REACTIONS (1)
  - RENAL IMPAIRMENT [None]
